FAERS Safety Report 7057729-9 (Version None)
Quarter: 2010Q4

REPORT INFORMATION
  Report Type: 
  Country: None (occurrence: None)
  Receive Date: 20101022
  Receipt Date: 20101011
  Transmission Date: 20110411
  Serious: Yes (Other)
  Sender: FDA-Public Use
  Company Number: FR-PFIZER INC-2010016054

PATIENT
  Sex: Female
  Weight: 65 kg

DRUGS (1)
  1. EXEMESTANE [Suspect]
     Dosage: UNK

REACTIONS (3)
  - ARTHRALGIA [None]
  - JOINT STIFFNESS [None]
  - OSTEOPENIA [None]
